FAERS Safety Report 4340956-9 (Version None)
Quarter: 2004Q2

REPORT INFORMATION
  Report Type: 
  Country: None (occurrence: None)
  Receive Date: 20040413
  Receipt Date: 20040331
  Transmission Date: 20050107
  Serious: Yes (Hospitalization)
  Sender: FDA-Public Use
  Company Number: 2004021740

PATIENT
  Age: 38 Year
  Sex: Male

DRUGS (1)
  1. VFEND [Suspect]
     Indication: ORAL CANDIDIASIS
     Dosage: 400 MG (DAILY), ORAL
     Route: 048
     Dates: start: 20040102, end: 20040212

REACTIONS (1)
  - NEUTROPENIA [None]
